FAERS Safety Report 5115755-0 (Version None)
Quarter: 2006Q3

REPORT INFORMATION
  Report Type: 
  Country: None (occurrence: None)
  Receive Date: 20060927
  Receipt Date: 20060918
  Transmission Date: 20061208
  Serious: Yes (Other)
  Sender: FDA-Public Use
  Company Number: US-ROCHE-463895

PATIENT
  Sex: Female

DRUGS (1)
  1. BONIVA [Suspect]
     Indication: DRUG USE FOR UNKNOWN INDICATION
     Route: 065
     Dates: start: 20060815

REACTIONS (9)
  - CHOKING [None]
  - DYSPHAGIA [None]
  - EYE SWELLING [None]
  - NAUSEA [None]
  - OCULAR HYPERAEMIA [None]
  - PARANOIA [None]
  - SWELLING FACE [None]
  - THROAT TIGHTNESS [None]
  - VOMITING [None]
